FAERS Safety Report 4609613-5 (Version None)
Quarter: 2005Q1

REPORT INFORMATION
  Report Type: 
  Country: None (occurrence: None)
  Receive Date: 20050316
  Receipt Date: 20050309
  Transmission Date: 20050727
  Serious: Yes (Death, Hospitalization)
  Sender: FDA-Public Use
  Company Number: 200510892FR

PATIENT
  Age: 46 Year
  Sex: Female

DRUGS (2)
  1. TAXOTERE [Suspect]
     Indication: BREAST CANCER
     Route: 042
     Dates: start: 20050214, end: 20050214
  2. HORMONES AND RELATED AGENTS [Concomitant]

REACTIONS (9)
  - ACUTE RESPIRATORY DISTRESS SYNDROME [None]
  - CARDIAC FAILURE [None]
  - CARDIAC MURMUR [None]
  - CARDIOGENIC SHOCK [None]
  - CHILLS [None]
  - INFLUENZA [None]
  - PNEUMONITIS [None]
  - PULMONARY FIBROSIS [None]
  - RIGHT VENTRICULAR FAILURE [None]
